FAERS Safety Report 16680802 (Version 4)
Quarter: 2019Q4

REPORT INFORMATION
  Report Type: Report from Study
  Country: US (occurrence: US)
  Receive Date: 20190808
  Receipt Date: 20191226
  Transmission Date: 20200122
  Serious: Yes (Hospitalization)
  Sender: FDA-Public Use
  Company Number: US-ROCHE-2366275

PATIENT
  Age: 77 Year
  Sex: Male

DRUGS (2)
  1. ESBRIET [Suspect]
     Active Substance: PIRFENIDONE
     Indication: IDIOPATHIC PULMONARY FIBROSIS
     Dosage: TAKE 3 TABLET(S) BY MOUTH 3 TIMES A DAY WITH MEALS
     Route: 048
     Dates: start: 201904
  2. ESBRIET [Suspect]
     Active Substance: PIRFENIDONE
     Indication: ASTHMA

REACTIONS (8)
  - Incoherent [Unknown]
  - Pruritus [Unknown]
  - Gastric disorder [Unknown]
  - Swelling [Unknown]
  - Skin discolouration [Unknown]
  - Skin discolouration [Unknown]
  - Flatulence [Unknown]
  - Cardiac failure congestive [Unknown]

NARRATIVE: CASE EVENT DATE: 20190719
